FAERS Safety Report 9798797 (Version 1)
Quarter: 2013Q4

REPORT INFORMATION
  Report Type: Spontaneous
  Country: FR (occurrence: None)
  Receive Date: 20131230
  Receipt Date: 20131230
  Transmission Date: 20140711
  Serious: Yes (Hospitalization)
  Sender: FDA-Public Use
  Company Number: AXC-2013-000682

PATIENT
  Age: 58 Year
  Sex: Male

DRUGS (9)
  1. PYLERA [Suspect]
     Indication: PRODUCT USED FOR UNKNOWN INDICATION
     Route: 048
     Dates: start: 20130927, end: 20131006
  2. PLAVIX [Concomitant]
  3. LIPANTHYL [Concomitant]
  4. SECTRAL [Concomitant]
  5. PROCORALAN [Concomitant]
  6. INEXIUM [Concomitant]
  7. NATISPRAY [Concomitant]
  8. OMACOR [Concomitant]
  9. TAREG [Concomitant]

REACTIONS (3)
  - Pancreatitis acute [None]
  - Melaena [None]
  - Gastritis [None]
